FAERS Safety Report 18543594 (Version 1)
Quarter: 2020Q4

REPORT INFORMATION
  Report Type: Spontaneous
  Country: US (occurrence: US)
  Receive Date: 20201125
  Receipt Date: 20201125
  Transmission Date: 20210114
  Serious: No
  Sender: FDA-Public Use
  Company Number: US-SA-2020SA336598

PATIENT

DRUGS (1)
  1. DUPIXENT [Suspect]
     Active Substance: DUPILUMAB
     Dosage: 300 MG, QOW
     Route: 058
     Dates: start: 202010

REACTIONS (5)
  - Dyspnoea [Unknown]
  - Asthma [Unknown]
  - Middle insomnia [Unknown]
  - Wheezing [Unknown]
  - Decreased activity [Unknown]

NARRATIVE: CASE EVENT DATE: 2020
